FAERS Safety Report 15623753 (Version 3)
Quarter: 2019Q1

REPORT INFORMATION
  Report Type: Spontaneous
  Country: JP (occurrence: JP)
  Receive Date: 20181115
  Receipt Date: 20190217
  Transmission Date: 20190417
  Serious: Yes (Other)
  Sender: FDA-Public Use
  Company Number: JP-BRISTOL-MYERS SQUIBB COMPANY-BMS-2018-107637

PATIENT
  Age: 63 Year
  Sex: Male
  Weight: 35.2 kg

DRUGS (1)
  1. OPDIVO [Suspect]
     Active Substance: NIVOLUMAB
     Indication: HEAD AND NECK CANCER
     Dosage: 100 MG, Q2WK
     Route: 041
     Dates: start: 20171011

REACTIONS (3)
  - Oesophageal stenosis [Recovered/Resolved]
  - Malignant neoplasm progression [Unknown]
  - Dermatitis contact [Recovering/Resolving]

NARRATIVE: CASE EVENT DATE: 20171024
